FAERS Safety Report 23309225 (Version 1)
Quarter: 2023Q4

REPORT INFORMATION
  Report Type: Spontaneous
  Country: NL (occurrence: NL)
  Receive Date: 20231218
  Receipt Date: 20231218
  Transmission Date: 20240110
  Serious: Yes (Life-Threatening, Hospitalization)
  Sender: FDA-Public Use
  Company Number: None

PATIENT
  Age: 75 Year
  Sex: Male

DRUGS (7)
  1. EZETIMIBE [Suspect]
     Active Substance: EZETIMIBE
     Indication: Dyslipidaemia
     Dosage: 1X PER DAY 1 PIECE
     Dates: start: 20220501, end: 20220814
  2. ASPIRIN [Concomitant]
     Active Substance: ASPIRIN
     Dosage: TABLET, 80 MG (MILLIGRAM)
  3. ISOSORBIDE MONONITRATE [Concomitant]
     Active Substance: ISOSORBIDE MONONITRATE
     Dosage: TABLET WITH REGULATED RELEASE, 30 MG (MILLIGRAM)
  4. CHOLECALCIFEROL [Concomitant]
     Active Substance: CHOLECALCIFEROL
     Dosage: CAPSULE, 5600 UNITS
  5. METOPROLOL [Concomitant]
     Active Substance: METOPROLOL
     Dosage: TABLET WITH REGULATED RELEASE, 50 MG (MILLIGRAM)
  6. AMLODIPINE [Concomitant]
     Active Substance: AMLODIPINE BESYLATE
     Dosage: TABLET, 5 MG (MILLIGRAM)
  7. ESOMEPRAZOLE [Concomitant]
     Active Substance: ESOMEPRAZOLE
     Dosage: GASTRO-RESISTANT CAPSULE, 40 MG (MILLIGRAM)

REACTIONS (2)
  - Diarrhoea [Recovering/Resolving]
  - Weight decreased [Recovering/Resolving]
